FAERS Safety Report 9463502 (Version 3)
Quarter: 2014Q2

REPORT INFORMATION
  Report Type: Spontaneous
  Country: AU (occurrence: AU)
  Receive Date: 20130819
  Receipt Date: 20140523
  Transmission Date: 20141212
  Serious: Yes (Other)
  Sender: FDA-Public Use
  Company Number: AU-AMGEN-AUSSP2013056557

PATIENT
  Age: 67 Year
  Sex: Male

DRUGS (4)
  1. XGEVA [Suspect]
     Indication: PROSTATE CANCER METASTATIC
     Dosage: 120 MG, Q4WK
     Route: 058
     Dates: start: 20121130, end: 20130826
  2. LUCRIN [Concomitant]
     Indication: PROSTATE CANCER
     Dosage: 22.5 MG, Q3MO
  3. PREDNISOLONE [Concomitant]
     Dosage: 10 MG, QD
     Dates: start: 20121207, end: 20130405
  4. CHEMOTHERAPEUTICS [Concomitant]

REACTIONS (3)
  - Osteonecrosis of jaw [Not Recovered/Not Resolved]
  - Pain [Recovered/Resolved]
  - Inflammation [Unknown]
